FAERS Safety Report 25494805 (Version 1)
Quarter: 2025Q2

REPORT INFORMATION
  Report Type: Spontaneous
  Country: US (occurrence: None)
  Receive Date: 20250630
  Receipt Date: 20250630
  Transmission Date: 20250717
  Serious: Yes (Other)
  Sender: FDA-CTU
  Company Number: None

PATIENT
  Sex: Female

DRUGS (11)
  1. BOTOX [Suspect]
     Active Substance: ONABOTULINUMTOXINA
     Indication: Migraine without aura
     Route: 058
     Dates: start: 20230901
  2. ABILIFY [Concomitant]
     Active Substance: ARIPIPRAZOLE
  3. AIMOVIG [Concomitant]
     Active Substance: ERENUMAB-AOOE
  4. ALLERGY RELF [Concomitant]
  5. AZELASTINE SPR [Concomitant]
  6. BENADRYL [Concomitant]
     Active Substance: DIPHENHYDRAMINE HYDROCHLORIDE
  7. DEPAKOTE ER [Concomitant]
     Active Substance: DIVALPROEX SODIUM
  8. DICYCLOMINE [Concomitant]
     Active Substance: DICYCLOMINE HYDROCHLORIDE
  9. DIGOXIN [Concomitant]
     Active Substance: DIGOXIN
  10. DIPHENHYDRAM [Concomitant]
  11. EXCEDRIN [Concomitant]
     Active Substance: ACETAMINOPHEN\ASPIRIN\CAFFEINE

REACTIONS (1)
  - Pulmonary thrombosis [None]
